FAERS Safety Report 24106289 (Version 1)
Quarter: 2024Q3

REPORT INFORMATION
  Report Type: Spontaneous
  Country: US (occurrence: US)
  Receive Date: 20240717
  Receipt Date: 20240717
  Transmission Date: 20241017
  Serious: No
  Sender: Phathom Pharmaceuticals
  Company Number: US-PHATHOM PHARMACEUTICALS INC.-2024PHT00236

PATIENT
  Age: 38 Year
  Sex: Female
  Weight: 95.692 kg

DRUGS (5)
  1. VOQUEZNA DUAL PAK [Suspect]
     Active Substance: AMOXICILLIN\VONOPRAZAN FUMARATE
     Indication: Helicobacter infection
     Dosage: 1 TABLET OF 20 MG VOQUEZNA 2X DAILY, AND 2 CAPSULES OF AMOXICILLIN 500 MG, 3 X DAILY
     Route: 048
     Dates: start: 20240416, end: 20240430
  2. MONTELUKAST [Concomitant]
     Active Substance: MONTELUKAST SODIUM
  3. VRAYLAR [Concomitant]
     Active Substance: CARIPRAZINE
  4. LEXAPRO [Concomitant]
     Active Substance: ESCITALOPRAM OXALATE
  5. VALTREX [Concomitant]
     Active Substance: VALACYCLOVIR HYDROCHLORIDE
     Dosage: UNK

REACTIONS (5)
  - Syncope [Recovered/Resolved]
  - Hypotension [Not Recovered/Not Resolved]
  - Brain fog [Recovering/Resolving]
  - Cortisol decreased [Unknown]
  - Nausea [Recovered/Resolved]

NARRATIVE: CASE EVENT DATE: 20240420
